FAERS Safety Report 11466489 (Version 1)
Quarter: 2015Q3

REPORT INFORMATION
  Report Type: Spontaneous
  Country: US (occurrence: US)
  Receive Date: 20150907
  Receipt Date: 20150907
  Transmission Date: 20151125
  Serious: Yes (Hospitalization)
  Sender: FDA-Public Use
  Company Number: US-ACTAVIS-2015-18359

PATIENT
  Age: 57 Year
  Sex: Male

DRUGS (3)
  1. CALTRATE                           /00944201/ [Concomitant]
     Indication: PRODUCT USED FOR UNKNOWN INDICATION
  2. MULTIVITAMIN                       /00097801/ [Concomitant]
     Active Substance: VITAMINS
     Indication: PRODUCT USED FOR UNKNOWN INDICATION
  3. IBANDRONATE (WATSON LABORATORIES) [Suspect]
     Active Substance: IBANDRONATE SODIUM
     Indication: OSTEOPOROSIS
     Dosage: 150 MG ONCE A MONTH - TOOK ONE DOSE ONLY
     Route: 048
     Dates: start: 20150813, end: 20150813

REACTIONS (6)
  - Chest pain [Not Recovered/Not Resolved]
  - Oesophageal pain [Not Recovered/Not Resolved]
  - Rash [Recovered/Resolved]
  - Oesophageal ulcer [Not Recovered/Not Resolved]
  - Oesophagitis [Not Recovered/Not Resolved]
  - Pyrexia [Recovered/Resolved]

NARRATIVE: CASE EVENT DATE: 20150817
